FAERS Safety Report 4303956-0 (Version None)
Quarter: 2004Q1

REPORT INFORMATION
  Report Type: 
  Country: None (occurrence: None)
  Receive Date: 20040223
  Receipt Date: 20031114
  Transmission Date: 20041129
  Serious: No
  Sender: FDA-Public Use
  Company Number: PHEH2003US10539

PATIENT
  Age: 26 Year
  Sex: Female

DRUGS (3)
  1. ZELNORM [Suspect]
  2. OVCON-35 (NORETHISTERONE) [Concomitant]
  3. DOSTINEX [Concomitant]

REACTIONS (1)
  - VULVOVAGINAL DRYNESS [None]
